FAERS Safety Report 18103548 (Version 1)
Quarter: 2020Q3

REPORT INFORMATION
  Report Type: Spontaneous
  Country: US (occurrence: US)
  Receive Date: 20200731
  Receipt Date: 20200731
  Transmission Date: 20201103
  Serious: No
  Sender: FDA-Public Use
  Company Number: None

PATIENT
  Age: 70 Year
  Sex: Female

DRUGS (17)
  1. OMEPRAZOLE 40MG [Concomitant]
     Active Substance: OMEPRAZOLE
  2. SIMVASTATIN 40MG [Concomitant]
     Active Substance: SIMVASTATIN
  3. DYAZIDE 37.5MG/25MG [Concomitant]
  4. RAYALDEE [Suspect]
     Active Substance: CALCIFEDIOL
     Indication: HYPERPARATHYROIDISM
     Route: 048
     Dates: start: 20200615, end: 20200715
  5. AMITRIPTYLINE 75MG [Concomitant]
  6. BYDUREON BCIS 2MG/0.85ML [Concomitant]
  7. LOPRESSOR 50MG [Concomitant]
  8. PLAVIX [Concomitant]
     Active Substance: CLOPIDOGREL BISULFATE
  9. TRESIBA FLEXTOUCH U?200 [Concomitant]
  10. LATANOPROST 0.005% [Concomitant]
     Active Substance: LATANOPROST
  11. MEGACE 40MG [Concomitant]
  12. NIFEDIPINE 30MG ER [Concomitant]
  13. VITAMIN D3 50,000IU [Concomitant]
  14. TIMOLOL MALEATE 0.5% OPTHALAMIC [Concomitant]
  15. BUSPAR 10MG [Concomitant]
  16. CELEBREX 100MG [Concomitant]
  17. FARXIGA [Concomitant]
     Active Substance: DAPAGLIFLOZIN PROPANEDIOL

REACTIONS (1)
  - Adverse drug reaction [None]

NARRATIVE: CASE EVENT DATE: 20200710
